FAERS Safety Report 8142619-0 (Version None)
Quarter: 2012Q1

REPORT INFORMATION
  Report Type: 
  Country: None (occurrence: None)
  Receive Date: 20120216
  Receipt Date: 20120208
  Transmission Date: 20120608
  Serious: Yes (Other)
  Sender: FDA-Public Use
  Company Number: GB-ABBOTT-12P-167-0897573-00

PATIENT
  Age: 40 Year
  Sex: Female
  Weight: 60 kg

DRUGS (1)
  1. HUMIRA [Suspect]
     Indication: INFERTILITY
     Route: 058
     Dates: start: 20111126, end: 20111210

REACTIONS (3)
  - FOLLICULITIS [None]
  - OFF LABEL USE [None]
  - CELLULITIS [None]
